FAERS Safety Report 21038215 (Version 2)
Quarter: 2022Q3

REPORT INFORMATION
  Report Type: Spontaneous
  Country: US (occurrence: None)
  Receive Date: 20220704
  Receipt Date: 20220718
  Transmission Date: 20221026
  Serious: No
  Sender: FDA-Public Use
  Company Number: US-Merck Healthcare KGaA-9332708

PATIENT
  Age: 38 Year
  Sex: Male

DRUGS (1)
  1. MAVENCLAD [Suspect]
     Active Substance: CLADRIBINE
     Indication: Multiple sclerosis

REACTIONS (12)
  - Balance disorder [Unknown]
  - Musculoskeletal stiffness [Unknown]
  - Muscle tightness [Unknown]
  - Discomfort [Unknown]
  - Tension [Unknown]
  - Muscular weakness [Unknown]
  - Sexual dysfunction [Unknown]
  - Abdominal discomfort [Unknown]
  - Initial insomnia [Unknown]
  - Myalgia [Unknown]
  - Cerebral disorder [Unknown]
  - Physical disability [Unknown]
